FAERS Safety Report 25807212 (Version 1)
Quarter: 2025Q3

REPORT INFORMATION
  Report Type: Spontaneous
  Country: US (occurrence: None)
  Receive Date: 20250915
  Receipt Date: 20250915
  Transmission Date: 20251021
  Serious: Yes (unspecified)
  Sender: FDA-CTU
  Company Number: None

PATIENT
  Age: 73 Year
  Sex: Female
  Weight: 61.23 kg

DRUGS (19)
  1. ZEPBOUND [Suspect]
     Active Substance: TIRZEPATIDE
     Indication: Weight decreased
     Dates: start: 20240606, end: 20241223
  2. VITAMINS [Suspect]
     Active Substance: VITAMINS
  3. SEMAGLUTIDE [Suspect]
     Active Substance: SEMAGLUTIDE
  4. Amovig (monthly), [Concomitant]
  5. Nurtec (as needed). [Concomitant]
  6. Eletriptan (as needed) [Concomitant]
  7. Relivion (neurostimulator --daily [Concomitant]
  8. Linzess  (daily) [Concomitant]
  9. Doxepin + Ramelteon (daily). [Concomitant]
  10. Fluticasone Proprionate (daily) [Concomitant]
  11. Gabapentin (daily) [Concomitant]
  12. Prolia (every 6 months) [Concomitant]
  13. Vaccines (as needed) [Concomitant]
  14. VITAMINS [Concomitant]
     Active Substance: VITAMINS
  15. Ca+D [Concomitant]
  16. IRON [Concomitant]
     Active Substance: IRON
  17. THIAMINE HYDROCHLORIDE [Concomitant]
     Active Substance: THIAMINE HYDROCHLORIDE
  18. B12 [Concomitant]
  19. PROBIOTICS NOS [Concomitant]
     Active Substance: PROBIOTICS NOS

REACTIONS (11)
  - Drug titration error [None]
  - Nausea [None]
  - Constipation [None]
  - Migraine [None]
  - Insomnia [None]
  - Hypoglycaemia [None]
  - Hypotension [None]
  - Neuropathy peripheral [None]
  - Peripheral coldness [None]
  - Adverse drug reaction [None]
  - Hypergammaglobulinaemia benign monoclonal [None]

NARRATIVE: CASE EVENT DATE: 20240801
